FAERS Safety Report 10368073 (Version 1)
Quarter: 2014Q3

REPORT INFORMATION
  Report Type: Spontaneous
  Country: US (occurrence: None)
  Receive Date: 20140805
  Receipt Date: 20140805
  Transmission Date: 20150326
  Serious: Yes (Death)
  Sender: FDA-Public Use
  Company Number: 2462613

PATIENT
  Age: 59 Year
  Sex: Female

DRUGS (4)
  1. CYTARABINE. [Concomitant]
     Active Substance: CYTARABINE
  2. PREDNISONE. [Concomitant]
     Active Substance: PREDNISONE
  3. DAUNORUBICIN [Concomitant]
     Active Substance: DAUNORUBICIN
  4. VINCRISTINE SULFATE. [Suspect]
     Active Substance: VINCRISTINE SULFATE
     Indication: ACUTE LYMPHOCYTIC LEUKAEMIA
     Route: 037

REACTIONS (16)
  - Wrong drug administered [None]
  - Tachycardia [None]
  - Nystagmus [None]
  - Chills [None]
  - Disorientation [None]
  - Asthenia [None]
  - Vomiting [None]
  - Pyrexia [None]
  - Tremor [None]
  - Stupor [None]
  - Nausea [None]
  - Mental status changes [None]
  - Coma [None]
  - Medication error [None]
  - Staring [None]
  - Hypotension [None]
